FAERS Safety Report 6126608-3 (Version None)
Quarter: 2009Q1

REPORT INFORMATION
  Report Type: 
  Country: None (occurrence: None)
  Receive Date: 20090320
  Receipt Date: 20090307
  Transmission Date: 20090719
  Serious: Yes (Hospitalization, Other)
  Sender: FDA-Public Use
  Company Number: US-PFIZER INC-2009180097

PATIENT
  Age: 88 Year
  Sex: Female
  Weight: 65.76 kg

DRUGS (11)
  1. LYRICA [Suspect]
     Indication: NEUROPATHY PERIPHERAL
     Dates: start: 20090201, end: 20090304
  2. DIGOXIN [Concomitant]
     Indication: BRONCHITIS
  3. CARDIZEM [Concomitant]
     Indication: BRONCHITIS
  4. LASIX [Concomitant]
     Indication: BRONCHITIS
  5. VASOTEC [Concomitant]
     Indication: BRONCHITIS
  6. ATIVAN [Concomitant]
  7. PROTONIX [Concomitant]
     Indication: GASTRIC DISORDER
  8. LEVEMIR [Concomitant]
     Indication: DIABETES MELLITUS
  9. NOVOLOG [Concomitant]
     Indication: DIABETES MELLITUS
  10. ASPIRIN [Concomitant]
  11. LEVAQUIN [Concomitant]
     Indication: BRONCHITIS
     Dates: end: 20090201

REACTIONS (10)
  - BLISTER [None]
  - DELUSION [None]
  - DYSPNOEA [None]
  - ENCEPHALOPATHY [None]
  - GAIT DISTURBANCE [None]
  - IMPAIRED SELF-CARE [None]
  - LETHARGY [None]
  - LIMB INJURY [None]
  - NECK PAIN [None]
  - SPEECH DISORDER [None]
